FAERS Safety Report 7788721-4 (Version None)
Quarter: 2011Q3

REPORT INFORMATION
  Report Type: 
  Country: None (occurrence: None)
  Receive Date: 20110928
  Receipt Date: 20110913
  Transmission Date: 20111222
  Serious: Yes (Death)
  Sender: FDA-Public Use
  Company Number: FK201101984

PATIENT
  Age: 68 Year
  Sex: Male

DRUGS (4)
  1. MESNA [Concomitant]
  2. IFOSFAMIDE [Suspect]
     Indication: LEIOMYOSARCOMA METASTATIC
     Dosage: 2000 MG/M2
  3. DEXTROSE WATER (GLUCOSE) [Concomitant]
  4. NEUPOGEN [Concomitant]

REACTIONS (5)
  - METABOLIC ACIDOSIS [None]
  - RENAL FAILURE ACUTE [None]
  - NEUROTOXICITY [None]
  - SEPSIS [None]
  - CONFUSIONAL STATE [None]
